FAERS Safety Report 8837381 (Version 1)
Quarter: 2012Q4

REPORT INFORMATION
  Report Type: 
  Country: US (occurrence: US)
  Receive Date: 20121012
  Receipt Date: 20121012
  Transmission Date: 20130627
  Serious: No
  Sender: FDA-Public Use
  Company Number: US-PFIZER INC-2012251137

PATIENT
  Age: 60 Year
  Sex: Female
  Weight: 65 kg

DRUGS (2)
  1. ADVIL [Suspect]
     Indication: ARTHRALGIA
     Dosage: 200 mg, daily
     Route: 048
     Dates: start: 2009, end: 2012
  2. ADVIL [Suspect]
     Dosage: 200 mg, daily
     Route: 048
     Dates: start: 20121007

REACTIONS (1)
  - Drug ineffective [Unknown]
